FAERS Safety Report 8604310-3 (Version None)
Quarter: 2012Q3

REPORT INFORMATION
  Report Type: 
  Country: None (occurrence: None)
  Receive Date: 20120820
  Receipt Date: 20120808
  Transmission Date: 20120928
  Serious: Yes (Other)
  Sender: FDA-Public Use
  Company Number: US-JNJFOC-20120805790

PATIENT
  Age: 56 Year
  Sex: Female

DRUGS (1)
  1. REMICADE [Suspect]
     Indication: CROHN'S DISEASE
     Dosage: FOR ABOUT 7 YEARS
     Route: 042

REACTIONS (3)
  - GASTROOESOPHAGEAL REFLUX DISEASE [None]
  - VAGINAL PROLAPSE [None]
  - HYPERLIPIDAEMIA [None]
